FAERS Safety Report 15395045 (Version 1)
Quarter: 2018Q4

REPORT INFORMATION
  Report Type: Spontaneous
  Country: US (occurrence: US)
  Receive Date: 20180918
  Receipt Date: 20180918
  Transmission Date: 20190204
  Serious: No
  Sender: FDA-Public Use
  Company Number: US-TEVA-2018-US-955653

PATIENT
  Sex: Female

DRUGS (2)
  1. SORIATANE [Suspect]
     Active Substance: ACITRETIN
     Indication: LICHEN PLANUS
     Dosage: 10 MILLIGRAM DAILY;
     Route: 048
     Dates: start: 20180718
  2. SORIATANE [Suspect]
     Active Substance: ACITRETIN
     Dosage: 25 MILLIGRAM DAILY;
     Route: 048
     Dates: start: 20180806, end: 20180825

REACTIONS (5)
  - Lip pain [Recovering/Resolving]
  - Chapped lips [Recovering/Resolving]
  - Lip swelling [Recovering/Resolving]
  - Product use in unapproved indication [Unknown]
  - Lip exfoliation [Recovering/Resolving]

NARRATIVE: CASE EVENT DATE: 20180718
